FAERS Safety Report 12428963 (Version 1)
Quarter: 2016Q2

REPORT INFORMATION
  Report Type: Report from Study
  Country: CO (occurrence: CO)
  Receive Date: 20160602
  Receipt Date: 20160602
  Transmission Date: 20160815
  Serious: Yes (Other)
  Sender: FDA-Public Use
  Company Number: CO-JNJFOC-20160527345

PATIENT
  Age: 64 Year
  Sex: Female
  Weight: 44 kg

DRUGS (1)
  1. SIMPONI [Suspect]
     Active Substance: GOLIMUMAB
     Indication: RHEUMATOID ARTHRITIS
     Route: 058
     Dates: start: 20151126

REACTIONS (6)
  - Urine analysis abnormal [Not Recovered/Not Resolved]
  - Off label use [Unknown]
  - Drug prescribing error [Unknown]
  - Abscess [Not Recovered/Not Resolved]
  - Nodule [Not Recovered/Not Resolved]
  - Dental caries [Not Recovered/Not Resolved]

NARRATIVE: CASE EVENT DATE: 20151126
